FAERS Safety Report 5274209-1 (Version None)
Quarter: 2007Q1

REPORT INFORMATION
  Report Type: 
  Country: None (occurrence: None)
  Receive Date: 20070323
  Receipt Date: 20070312
  Transmission Date: 20070707
  Serious: Yes (Disabling, Other)
  Sender: FDA-Public Use
  Company Number: SE-BOEHRINGER INGELHEIM GMBH, GERMANY-2007-DE-01487GD

PATIENT
  Sex: Male

DRUGS (9)
  1. FENOTEROL [Suspect]
     Route: 015
  2. BUDESONIDE [Suspect]
     Route: 015
  3. DIAZEPAM [Suspect]
     Route: 015
  4. TERBUTALINE SULFATE [Suspect]
     Route: 015
  5. BETAMETHASONE [Suspect]
     Route: 015
  6. PREDNISOLONE [Suspect]
     Route: 015
  7. HALOPERIDOL [Suspect]
     Route: 015
  8. LEVOMEPROMAZINE [Suspect]
     Route: 015
  9. HEPARIN [Suspect]
     Route: 015

REACTIONS (7)
  - AUTISM SPECTRUM DISORDER [None]
  - BRADYCARDIA [None]
  - DYSPNOEA [None]
  - FOETAL GROWTH RETARDATION [None]
  - NEONATAL ASPIRATION [None]
  - PERIVENTRICULAR LEUKOMALACIA [None]
  - RETINOPATHY OF PREMATURITY [None]
